FAERS Safety Report 16873989 (Version 2)
Quarter: 2019Q4

REPORT INFORMATION
  Report Type: Report from Study
  Country: None (occurrence: US)
  Receive Date: 20191001
  Receipt Date: 20191031
  Transmission Date: 20200122
  Serious: Yes (Hospitalization)
  Sender: FDA-Public Use
  Company Number: US-ABBVIE-19P-163-2887817-00

PATIENT
  Age: 67 Year
  Sex: Male
  Weight: 89.7 kg

DRUGS (36)
  1. VENETOCLAX. [Suspect]
     Active Substance: VENETOCLAX
     Indication: ACUTE MYELOID LEUKAEMIA
     Route: 048
     Dates: start: 20190708, end: 20190708
  2. VENETOCLAX. [Suspect]
     Active Substance: VENETOCLAX
     Route: 048
     Dates: start: 20190710, end: 20190710
  3. CALCIUM CARBONATE. [Concomitant]
     Active Substance: CALCIUM CARBONATE
     Indication: VITAMIN SUPPLEMENTATION
     Route: 048
     Dates: start: 20181231
  4. MAGNESIUM OXIDE. [Concomitant]
     Active Substance: MAGNESIUM OXIDE
     Indication: VITAMIN SUPPLEMENTATION
     Route: 048
     Dates: start: 20190513
  5. POTASSIUM CHLORIDE. [Concomitant]
     Active Substance: POTASSIUM CHLORIDE
     Indication: VITAMIN SUPPLEMENTATION
     Route: 048
     Dates: start: 20190108
  6. DINACICLIB [Suspect]
     Active Substance: DINACICLIB
     Route: 042
     Dates: start: 20190711, end: 20190711
  7. COREG [Concomitant]
     Active Substance: CARVEDILOL
     Indication: ATRIAL FIBRILLATION
  8. CHOLECALCIFEROL (VITAMIN D3) [Concomitant]
     Indication: VITAMIN D DEFICIENCY
     Route: 048
     Dates: start: 20190321
  9. LEVAQUIN [Concomitant]
     Active Substance: LEVOFLOXACIN
     Indication: PROPHYLAXIS
     Route: 048
     Dates: start: 20190712
  10. SODIUM CHLORIDE (OCEAN) [Concomitant]
     Indication: RHINITIS
     Dosage: DOSE: 1 SPRAY
     Route: 045
     Dates: start: 20190722
  11. CPAP MACHINE [Concomitant]
     Indication: SLEEP APNOEA SYNDROME
     Route: 045
     Dates: start: 20170901
  12. DINACICLIB [Suspect]
     Active Substance: DINACICLIB
     Indication: ACUTE MYELOID LEUKAEMIA
     Route: 042
     Dates: start: 20190708, end: 20190708
  13. ACYCLOVIR (ZOVIRAX) [Concomitant]
     Indication: INFECTION PROPHYLAXIS
     Route: 048
     Dates: start: 20190719
  14. LIPITOR [Concomitant]
     Active Substance: ATORVASTATIN CALCIUM
     Indication: HYPERLIPIDAEMIA
     Route: 048
     Dates: start: 20170825
  15. VITAMIN D3 [Concomitant]
     Active Substance: CHOLECALCIFEROL
     Indication: VITAMIN D DEFICIENCY
     Route: 048
     Dates: start: 20181231
  16. MULTIVITAMIN [Concomitant]
     Active Substance: VITAMINS
     Indication: VITAMIN SUPPLEMENTATION
     Route: 048
     Dates: start: 20190515
  17. ALBUTEROL. [Concomitant]
     Active Substance: ALBUTEROL
     Indication: DYSPNOEA
  18. VENETOCLAX. [Suspect]
     Active Substance: VENETOCLAX
     Route: 048
     Dates: start: 20190711, end: 20190826
  19. VENETOCLAX. [Suspect]
     Active Substance: VENETOCLAX
     Route: 048
     Dates: start: 20190827
  20. ALLOPURINOL. [Concomitant]
     Active Substance: ALLOPURINOL
     Indication: PROPHYLAXIS
     Route: 048
     Dates: start: 20190707, end: 20190713
  21. 0.45% NACL INFUSION [Concomitant]
     Indication: PROPHYLAXIS
     Route: 042
     Dates: start: 20190711, end: 20190711
  22. BENZONATATE (TESSALON) [Concomitant]
     Indication: PRODUCTIVE COUGH
     Route: 048
     Dates: start: 20190721
  23. DIPHENHYDRAMINE (BENADRYL) [Concomitant]
     Indication: PREMEDICATION
     Route: 048
     Dates: start: 20190721
  24. FLUTICASONE (FLONASE) [Concomitant]
     Indication: RHINITIS ALLERGIC
     Route: 045
     Dates: start: 20170824
  25. MAGNESIUM OXIDE. [Concomitant]
     Active Substance: MAGNESIUM OXIDE
     Route: 048
     Dates: start: 20190710
  26. POTASSIUM CHLORIDE. [Concomitant]
     Active Substance: POTASSIUM CHLORIDE
     Indication: HYPOKALAEMIA
  27. TYLENOL [Concomitant]
     Active Substance: ACETAMINOPHEN
     Indication: FEBRILE NEUTROPENIA
     Route: 048
     Dates: start: 20190719
  28. VANCOMYCIN (VANCOCIN) [Concomitant]
     Indication: PROPHYLAXIS
  29. ALBUTEROL. [Concomitant]
     Active Substance: ALBUTEROL
     Indication: WHEEZING
     Route: 055
     Dates: start: 20190720
  30. COREG [Concomitant]
     Active Substance: CARVEDILOL
     Indication: HYPERTENSION
     Route: 048
     Dates: start: 20190312
  31. ZOFRAN [Concomitant]
     Active Substance: ONDANSETRON HYDROCHLORIDE
     Indication: NAUSEA
     Route: 048
     Dates: start: 20190719
  32. VANCOMYCIN (VANCOCIN) [Concomitant]
     Indication: PROPHYLAXIS
  33. DINACICLIB [Suspect]
     Active Substance: DINACICLIB
     Dosage: DAYS 1 AND 8 OF EACH 21-DAY CYCLE
     Route: 042
     Dates: start: 20190715
  34. ALLOPURINOL. [Concomitant]
     Active Substance: ALLOPURINOL
     Route: 048
     Dates: start: 20190702
  35. VENETOCLAX. [Suspect]
     Active Substance: VENETOCLAX
     Route: 048
     Dates: start: 20190709, end: 20190709
  36. AMOXICILLIN (AMOXIL) [Concomitant]
     Indication: PROPHYLAXIS
     Route: 048
     Dates: start: 20190521

REACTIONS (2)
  - Aspergillus infection [Recovered/Resolved]
  - Febrile neutropenia [Recovered/Resolved]

NARRATIVE: CASE EVENT DATE: 20190811
